FAERS Safety Report 5463375-0 (Version None)
Quarter: 2007Q3

REPORT INFORMATION
  Report Type: 
  Country: None (occurrence: None)
  Receive Date: 20070920
  Receipt Date: 20070912
  Transmission Date: 20080115
  Serious: Yes (Other)
  Sender: FDA-Public Use
  Company Number: GB-AMGEN-US243520

PATIENT
  Age: 6 Year
  Sex: Female
  Weight: 15.3 kg

DRUGS (4)
  1. ENBREL [Suspect]
     Indication: DRUG USE FOR UNKNOWN INDICATION
     Dosage: 4MG FREQUENCY UNKNOWN
     Route: 058
     Dates: start: 20060907, end: 20060922
  2. SENNA [Concomitant]
     Dosage: 5ML FREQUENCY UNKNOWN
     Dates: start: 20060601
  3. TRIMETHOPRIM [Concomitant]
     Dosage: 5ML FREQUENCY UNKNOWN
     Route: 048
     Dates: start: 20060601
  4. LACTULOSE [Concomitant]
     Dosage: 30ML FREQUENCY UNKNOWN
     Route: 048
     Dates: start: 20060601

REACTIONS (3)
  - LYMPHOCYTE COUNT DECREASED [None]
  - NEUTROPHIL COUNT DECREASED [None]
  - WHITE BLOOD CELL COUNT DECREASED [None]
